FAERS Safety Report 8563966-4 (Version None)
Quarter: 2012Q3

REPORT INFORMATION
  Report Type: 
  Country: None (occurrence: None)
  Receive Date: 20120803
  Receipt Date: 20120730
  Transmission Date: 20120928
  Serious: Yes (Other)
  Sender: FDA-Public Use
  Company Number: PHHY2012CA066658

PATIENT
  Age: 88 Year
  Sex: Male

DRUGS (2)
  1. EXELON [Suspect]
     Dosage: 4.6 MG, DAILY
     Route: 062
  2. EXELON [Suspect]
     Dosage: 9.5 MG, DAILY
     Route: 062

REACTIONS (4)
  - HALLUCINATION [None]
  - FALL [None]
  - DELIRIUM [None]
  - DYSARTHRIA [None]
